FAERS Safety Report 6611587-2 (Version None)
Quarter: 2010Q1

REPORT INFORMATION
  Report Type: 
  Country: None (occurrence: None)
  Receive Date: 20100303
  Receipt Date: 20100303
  Transmission Date: 20100710
  Serious: Yes (Hospitalization)
  Sender: FDA-Public Use
  Company Number: PHHO2009DE13362

PATIENT
  Sex: Male
  Weight: 96 kg

DRUGS (1)
  1. COLCHICINE COMP-COL+ [Suspect]
     Indication: GOUT
     Dosage: 0.5 MG, QD

REACTIONS (16)
  - ARTHRALGIA [None]
  - COMMINUTED FRACTURE [None]
  - EXCORIATION [None]
  - FALL [None]
  - FEMUR FRACTURE [None]
  - HAEMATOMA [None]
  - HAND FRACTURE [None]
  - JOINT DISLOCATION [None]
  - MEDICAL DEVICE IMPLANTATION [None]
  - MEDICAL DEVICE REMOVAL [None]
  - MOBILITY DECREASED [None]
  - MULTIPLE FRACTURES [None]
  - OSTEOSYNTHESIS [None]
  - PAIN [None]
  - RADIUS FRACTURE [None]
  - ULNA FRACTURE [None]
